FAERS Safety Report 7809648-5 (Version None)
Quarter: 2011Q4

REPORT INFORMATION
  Report Type: 
  Country: None (occurrence: None)
  Receive Date: 20111012
  Receipt Date: 20110930
  Transmission Date: 20120403
  Serious: Yes (Other)
  Sender: FDA-Public Use
  Company Number: JP-SANOFI-AVENTIS-2011SA064969

PATIENT
  Age: 76 Year
  Sex: Male
  Weight: 55.35 kg

DRUGS (8)
  1. TRIAZOLAM [Concomitant]
     Route: 048
  2. SEPAZON [Concomitant]
     Route: 048
  3. METFORMIN HCL [Concomitant]
     Dates: end: 20110731
  4. LANTUS [Concomitant]
     Dosage: DOSE: 7-8 IN EVENING
  5. INSULIN GLULISINE [Suspect]
     Indication: DIABETES MELLITUS
     Dosage: DOSE REPORTED AS 3-4/4/3-4 UNITS PER DAY
     Route: 065
     Dates: start: 20110401
  6. METFORMIN HCL [Concomitant]
     Dates: start: 20110801
  7. S. ADCHNON [Concomitant]
     Route: 048
  8. TSUKUSHI AM [Concomitant]
     Route: 048

REACTIONS (1)
  - ATRIAL FIBRILLATION [None]
